FAERS Safety Report 11360146 (Version 6)
Quarter: 2016Q1

REPORT INFORMATION
  Report Type: Report from Study
  Country: JP (occurrence: JP)
  Receive Date: 20150810
  Receipt Date: 20160330
  Transmission Date: 20160525
  Serious: Yes (Other)
  Sender: FDA-Public Use
  Company Number: PHJP2015JP012262

PATIENT
  Age: 5 Year
  Sex: Male
  Weight: 14 kg

DRUGS (8)
  1. ACZ885 [Suspect]
     Active Substance: CANAKINUMAB
     Indication: CRYOPYRIN ASSOCIATED PERIODIC SYNDROME
     Dosage: 30 MG, UNK
     Route: 058
     Dates: start: 20140924
  2. ACZ885 [Suspect]
     Active Substance: CANAKINUMAB
     Dosage: 30 MG, UNK
     Route: 058
     Dates: start: 20150513
  3. ACZ885 [Suspect]
     Active Substance: CANAKINUMAB
     Dosage: 30 MG, UNK
     Route: 058
     Dates: start: 20150311
  4. ACZ885 [Suspect]
     Active Substance: CANAKINUMAB
     Dosage: 30 MG, UNK
     Route: 058
     Dates: start: 20150119
  5. ACZ885 [Suspect]
     Active Substance: CANAKINUMAB
     Dosage: 30 MG, UNK
     Route: 058
     Dates: start: 20141119
  6. ACZ885 [Suspect]
     Active Substance: CANAKINUMAB
     Dosage: UNK
     Route: 058
     Dates: start: 20150323
  7. ACZ885 [Suspect]
     Active Substance: CANAKINUMAB
     Indication: MUCKLE-WELLS SYNDROME
     Dosage: 30 MG, UNK
     Route: 058
     Dates: start: 20140730
  8. ACZ885 [Suspect]
     Active Substance: CANAKINUMAB
     Dosage: 30 MG, UNK
     Route: 058
     Dates: start: 20150708

REACTIONS (6)
  - Beta haemolytic streptococcal infection [Recovered/Resolved]
  - Pyrexia [Recovered/Resolved]
  - Otitis media [Recovered/Resolved]
  - White blood cell count increased [Unknown]
  - Pharyngeal erythema [Unknown]
  - Pharyngitis [Recovering/Resolving]

NARRATIVE: CASE EVENT DATE: 20140924
